FAERS Safety Report 6010045-6 (Version None)
Quarter: 2008Q4

REPORT INFORMATION
  Report Type: 
  Country: None (occurrence: None)
  Receive Date: 20081216
  Receipt Date: 20081204
  Transmission Date: 20090506
  Serious: Yes (Other)
  Sender: FDA-Public Use
  Company Number: GXKR2008GR11605

PATIENT
  Age: 36 Year
  Sex: Male

DRUGS (3)
  1. DOXYCYCLINE [Suspect]
     Indication: Q FEVER
  2. THIRD-GENERATION CEPHALOSPORINS (NO INGREDIENTS/SUSTANCES) [Concomitant]
  3. QUINALONE ANTIBACTERIALS (NO INGREDIENTS/SUBSTANCES) [Concomitant]

REACTIONS (5)
  - COXIELLA INFECTION [None]
  - HYPOTENSION [None]
  - HYPOXIA [None]
  - JARISCH-HERXHEIMER REACTION [None]
  - TACHYPNOEA [None]
